FAERS Safety Report 23623798 (Version 1)
Quarter: 2024Q1

REPORT INFORMATION
  Report Type: Report from Study
  Country: US (occurrence: None)
  Receive Date: 20240312
  Receipt Date: 20240312
  Transmission Date: 20240410
  Serious: Yes (Hospitalization, Other)
  Sender: FDA-Public Use
  Company Number: 2024A053998

PATIENT
  Age: 923 Month
  Sex: Female

DRUGS (2)
  1. BRILINTA [Suspect]
     Active Substance: TICAGRELOR
     Route: 048
     Dates: start: 202307, end: 20240207
  2. ELIQUIS [Concomitant]
     Active Substance: APIXABAN

REACTIONS (15)
  - Dyspnoea [Unknown]
  - Pulmonary pain [Unknown]
  - Abdominal pain [Unknown]
  - Pulmonary embolism [Unknown]
  - Eye haemorrhage [Unknown]
  - Contusion [Unknown]
  - Vascular rupture [Unknown]
  - Eye pain [Unknown]
  - Discharge [Unknown]
  - Lacrimation increased [Unknown]
  - Malaise [Unknown]
  - Feeling abnormal [Unknown]
  - Fall [Unknown]
  - Stress [Unknown]
  - Product dose omission issue [Unknown]

NARRATIVE: CASE EVENT DATE: 20240101
